FAERS Safety Report 15508594 (Version 1)
Quarter: 2018Q4

REPORT INFORMATION
  Report Type: Spontaneous
  Country: ES (occurrence: ES)
  Receive Date: 20181016
  Receipt Date: 20181016
  Transmission Date: 20190205
  Serious: Yes (Other)
  Sender: FDA-Public Use
  Company Number: PHHY2018ES124630

PATIENT
  Age: 80 Year
  Sex: Female

DRUGS (2)
  1. KISQALI [Suspect]
     Active Substance: RIBOCICLIB
     Indication: TUBULAR BREAST CARCINOMA
     Dosage: 600 MG, QD
     Route: 048
     Dates: start: 20180820, end: 20180910
  2. LETROZOLE. [Concomitant]
     Active Substance: LETROZOLE
     Indication: TUBULAR BREAST CARCINOMA
     Dosage: 2.5 MG, QD
     Route: 048
     Dates: start: 20180820

REACTIONS (2)
  - Pancytopenia [Recovering/Resolving]
  - Respiratory tract infection [Recovered/Resolved]

NARRATIVE: CASE EVENT DATE: 20180911
